FAERS Safety Report 11882252 (Version 1)
Quarter: 2015Q4

REPORT INFORMATION
  Report Type: Spontaneous
  Country: US (occurrence: None)
  Receive Date: 20151230
  Receipt Date: 20151230
  Transmission Date: 20160305
  Serious: Yes (Hospitalization)
  Sender: FDA-Public Use
  Company Number: None

PATIENT
  Age: 74 Year
  Sex: Male
  Weight: 96.2 kg

DRUGS (2)
  1. ROSUVASTATIN [Suspect]
     Active Substance: ROSUVASTATIN
     Indication: TRANSIENT ISCHAEMIC ATTACK
     Route: 048
     Dates: start: 20111208, end: 20150811
  2. ROSUVASTATIN [Suspect]
     Active Substance: ROSUVASTATIN
     Indication: CORONARY ARTERIAL STENT INSERTION
     Route: 048
     Dates: start: 20111208, end: 20150811

REACTIONS (1)
  - Rhabdomyolysis [None]

NARRATIVE: CASE EVENT DATE: 20150825
